FAERS Safety Report 7463940-5 (Version None)
Quarter: 2011Q2

REPORT INFORMATION
  Report Type: 
  Country: None (occurrence: None)
  Receive Date: 20110506
  Receipt Date: 20110426
  Transmission Date: 20111010
  Serious: Yes (Death, Life-Threatening, Hospitalization)
  Sender: FDA-Public Use
  Company Number: ES-CELGENEUS-144-C5013-07110759

PATIENT
  Sex: Male
  Weight: 62.5 kg

DRUGS (4)
  1. PREDNISONE [Suspect]
     Indication: MULTIPLE MYELOMA
     Dosage: 130 MILLIGRAM
     Route: 048
     Dates: start: 20071011, end: 20071111
  2. MELPHALAN HYDROCHLORIDE [Suspect]
     Indication: MULTIPLE MYELOMA
     Dosage: 12 MILLIGRAM
     Route: 048
     Dates: start: 20071011, end: 20071111
  3. LENALIDOMIDE [Suspect]
     Indication: MULTIPLE MYELOMA
     Dosage: 7.5 MILLIGRAM
     Route: 048
     Dates: start: 20071011, end: 20071111
  4. NORADRENALINE [Concomitant]
     Route: 065

REACTIONS (2)
  - NEUTROPENIA [None]
  - PNEUMONIA [None]
